FAERS Safety Report 6795412-5 (Version None)
Quarter: 2010Q2

REPORT INFORMATION
  Report Type: 
  Country: None (occurrence: None)
  Receive Date: 20100625
  Receipt Date: 20100614
  Transmission Date: 20101027
  Serious: Yes (Other)
  Sender: FDA-Public Use
  Company Number: CA-GENENTECH-297067

PATIENT
  Sex: Male
  Weight: 93 kg

DRUGS (6)
  1. XOLAIR [Suspect]
     Indication: ASTHMA
     Dosage: 375 MG, Q2W
     Route: 058
     Dates: start: 20090903
  2. XOLAIR [Suspect]
     Dosage: 375 MG, Q2W
     Route: 058
     Dates: start: 20100111
  3. ADVAIR DISKUS 100/50 [Concomitant]
     Indication: DRUG USE FOR UNKNOWN INDICATION
  4. ALVESCO [Concomitant]
     Indication: DRUG USE FOR UNKNOWN INDICATION
  5. SINGULAIR [Concomitant]
     Indication: DRUG USE FOR UNKNOWN INDICATION
  6. PREDNISONE [Concomitant]
     Indication: DRUG USE FOR UNKNOWN INDICATION

REACTIONS (3)
  - DYSPNOEA [None]
  - NASAL OPERATION [None]
  - WHEEZING [None]
